FAERS Safety Report 7898912-X (Version None)
Quarter: 2011Q4

REPORT INFORMATION
  Report Type: 
  Country: None (occurrence: None)
  Receive Date: 20111107
  Receipt Date: 20111031
  Transmission Date: 20120403
  Serious: Yes (Hospitalization, Other)
  Sender: FDA-Public Use
  Company Number: JP-CEPHALON-2011004053

PATIENT
  Sex: Male
  Weight: 77 kg

DRUGS (6)
  1. DILTIAZEM HCL [Concomitant]
  2. SULFAMETHOXAZOLE AND TRIMETHOPRIM [Concomitant]
  3. LAFUTIDINE [Concomitant]
  4. MAGNESIUM OXIDE [Concomitant]
  5. BENDAMUSTINE HCL [Suspect]
     Indication: MANTLE CELL LYMPHOMA
     Route: 042
     Dates: start: 20110301
  6. ALLOPURINOL [Concomitant]

REACTIONS (8)
  - NAUSEA [None]
  - WHITE BLOOD CELL COUNT DECREASED [None]
  - PLATELET COUNT DECREASED [None]
  - C-REACTIVE PROTEIN INCREASED [None]
  - NEUTROPHIL COUNT DECREASED [None]
  - PYREXIA [None]
  - LYMPHOCYTE COUNT DECREASED [None]
  - RENAL IMPAIRMENT [None]
